FAERS Safety Report 8307863-8 (Version None)
Quarter: 2012Q2

REPORT INFORMATION
  Report Type: 
  Country: None (occurrence: None)
  Receive Date: 20120424
  Receipt Date: 20120412
  Transmission Date: 20120825
  Serious: Yes (Hospitalization, Disabling)
  Sender: FDA-Public Use
  Company Number: JP-JNJFOC-20110811625

PATIENT
  Sex: Female
  Weight: 39 kg

DRUGS (14)
  1. REMICADE [Suspect]
     Route: 042
     Dates: start: 20100831
  2. ASASURFAN [Concomitant]
     Indication: RHEUMATOID ARTHRITIS
     Route: 048
     Dates: start: 20060511
  3. REBAMIPIDE [Concomitant]
     Indication: GASTRITIS
     Route: 048
     Dates: end: 20110831
  4. VIVIANT [Concomitant]
     Indication: OSTEOPOROSIS
     Route: 048
  5. OSTELUC [Concomitant]
     Indication: RHEUMATOID ARTHRITIS
     Route: 048
     Dates: start: 20070712, end: 20110831
  6. ONEALFA [Concomitant]
     Indication: OSTEOPOROSIS
     Route: 048
  7. REMICADE [Suspect]
     Route: 042
     Dates: start: 20090804
  8. METHOTREXATE [Suspect]
     Indication: RHEUMATOID ARTHRITIS
     Route: 048
     Dates: start: 20110712, end: 20110716
  9. PREDONISOLONE [Concomitant]
     Indication: RHEUMATOID ARTHRITIS
     Route: 048
  10. FOLIAMIN [Concomitant]
     Indication: RHEUMATOID ARTHRITIS
     Route: 048
     Dates: start: 20071004, end: 20110716
  11. SIMVASTATIN [Concomitant]
     Indication: HYPERLIPIDAEMIA
     Route: 048
     Dates: end: 20110831
  12. REMICADE [Suspect]
     Indication: RHEUMATOID ARTHRITIS
     Dosage: 19TH INFLIXIMAB DOSE
     Route: 042
     Dates: start: 20110606
  13. REMICADE [Suspect]
     Route: 042
     Dates: start: 20110215
  14. REMICADE [Suspect]
     Route: 042
     Dates: start: 20081111

REACTIONS (2)
  - PATHOLOGICAL FRACTURE [None]
  - LYMPHOMA [None]
